FAERS Safety Report 10565284 (Version 1)
Quarter: 2014Q4

REPORT INFORMATION
  Report Type: Spontaneous
  Country: US (occurrence: US)
  Receive Date: 20141105
  Receipt Date: 20141105
  Transmission Date: 20150529
  Serious: Yes (Other)
  Sender: FDA-Public Use
  Company Number: US-RB-069747-14

PATIENT
  Sex: Male

DRUGS (1)
  1. MUCINEX [Suspect]
     Active Substance: GUAIFENESIN
     Indication: COUGH
     Dosage: PATIENT BEGAN TAKING THE DRUG 5 DAYS BEFORE REPORTING.1 EVERY 24 HOURS
     Route: 065

REACTIONS (6)
  - Hallucination [Unknown]
  - Dyspnoea [Unknown]
  - Sleep disorder [Unknown]
  - Hallucination, auditory [Unknown]
  - Drug effect decreased [Unknown]
  - Dependence [Unknown]

NARRATIVE: CASE EVENT DATE: 201410
